FAERS Safety Report 7917815-5 (Version None)
Quarter: 2011Q4

REPORT INFORMATION
  Report Type: 
  Country: None (occurrence: None)
  Receive Date: 20111116
  Receipt Date: 20111102
  Transmission Date: 20120403
  Serious: Yes (Other)
  Sender: FDA-Public Use
  Company Number: PHHY2011NL96760

PATIENT
  Age: 62 Year
  Sex: Female

DRUGS (3)
  1. LESCOL [Suspect]
  2. ATORVASTATIN [Concomitant]
  3. ATORVASTATIN CALCIUM [Concomitant]

REACTIONS (9)
  - TRANSIENT ISCHAEMIC ATTACK [None]
  - OROPHARYNGEAL PAIN [None]
  - ORAL PAIN [None]
  - CIRCULATORY COLLAPSE [None]
  - ERYTHEMA [None]
  - MUSCLE DISORDER [None]
  - BONE NEOPLASM MALIGNANT [None]
  - PAIN [None]
  - BURNING SENSATION [None]
